FAERS Safety Report 7240363-5 (Version None)
Quarter: 2011Q1

REPORT INFORMATION
  Report Type: 
  Country: None (occurrence: None)
  Receive Date: 20110124
  Receipt Date: 20110114
  Transmission Date: 20110831
  Serious: Yes (Death, Hospitalization)
  Sender: FDA-Public Use
  Company Number: US-CELGENEUS-163-21880-10111704

PATIENT
  Age: 77 Year
  Sex: Female
  Weight: 75.7 kg

DRUGS (7)
  1. REVLIMID [Suspect]
     Route: 048
     Dates: start: 20100707
  2. REVLIMID [Suspect]
     Route: 048
     Dates: start: 20101029, end: 20101107
  3. MELPHALAN [Suspect]
     Route: 048
     Dates: start: 20100707
  4. ASPIRIN [Concomitant]
     Route: 048
  5. MELPHALAN [Suspect]
     Route: 048
     Dates: start: 20101029, end: 20101101
  6. PREDNISONE [Suspect]
     Route: 048
     Dates: start: 20101029, end: 20101101
  7. PREDNISONE [Suspect]
     Route: 048
     Dates: start: 20100707

REACTIONS (2)
  - PNEUMONIA [None]
  - ANGINA PECTORIS [None]
